FAERS Safety Report 8549950-5 (Version None)
Quarter: 2012Q3

REPORT INFORMATION
  Report Type: 
  Country: None (occurrence: None)
  Receive Date: 20120718
  Receipt Date: 20120703
  Transmission Date: 20120928
  Serious: Yes (Hospitalization)
  Sender: FDA-Public Use
  Company Number: 2012AP002097

PATIENT
  Age: 48 Year
  Sex: Female

DRUGS (9)
  1. LAMOTRIGINE [Suspect]
     Indication: PRODUCT USED FOR UNKNOWN INDICATION
     Dosage: 100 MG, BID, PO
     Route: 048
  2. HALOPERIDOL [Suspect]
     Indication: AGITATION
     Dosage: 5 MG, IV
     Route: 042
  3. DIPHENHYDRAMINE HCL [Concomitant]
  4. GLIMEPIRIDE [Concomitant]
  5. DIPHENHYDRAMINE HCL [Concomitant]
  6. PAROXETINE HCL [Suspect]
     Indication: PRODUCT USED FOR UNKNOWN INDICATION
     Dosage: 40;20;30 MG, QD
  7. FAMOTIDINE [Concomitant]
  8. CLOZAPINE [Suspect]
     Indication: AGITATION
  9. PANTOPRAZOLE [Concomitant]

REACTIONS (19)
  - HYPERTHERMIA [None]
  - LEUKOCYTOSIS [None]
  - BLOOD GLUCOSE INCREASED [None]
  - AGITATION [None]
  - FOREIGN BODY [None]
  - RESTLESSNESS [None]
  - UPPER GASTROINTESTINAL HAEMORRHAGE [None]
  - CATATONIA [None]
  - MUSCLE RIGIDITY [None]
  - WITHDRAWAL SYNDROME [None]
  - BLOOD CREATININE INCREASED [None]
  - BLOOD UREA INCREASED [None]
  - SOCIAL AVOIDANT BEHAVIOUR [None]
  - UNRESPONSIVE TO STIMULI [None]
  - HAEMATEMESIS [None]
  - BLOOD CREATINE PHOSPHOKINASE INCREASED [None]
  - LETHARGY [None]
  - DEHYDRATION [None]
  - HALLUCINATION, AUDITORY [None]
